FAERS Safety Report 25443818 (Version 1)
Quarter: 2025Q2

REPORT INFORMATION
  Report Type: Spontaneous
  Country: US (occurrence: US)
  Receive Date: 20250617
  Receipt Date: 20250617
  Transmission Date: 20250716
  Serious: Yes (Other)
  Sender: ABBVIE
  Company Number: US-ABBVIE-6323376

PATIENT

DRUGS (1)
  1. ARMOUR THYROID [Suspect]
     Active Substance: THYROID, PORCINE
     Indication: Product used for unknown indication
     Route: 048
     Dates: start: 2011

REACTIONS (4)
  - Thyroidectomy [Unknown]
  - Thyroid disorder [Unknown]
  - Middle insomnia [Unknown]
  - Palpitations [Unknown]
